FAERS Safety Report 15113595 (Version 2)
Quarter: 2018Q3

REPORT INFORMATION
  Report Type: Report from Study
  Country: US (occurrence: US)
  Receive Date: 20180706
  Receipt Date: 20180709
  Transmission Date: 20181010
  Serious: Yes (Hospitalization)
  Sender: FDA-Public Use
  Company Number: US-BIOGEN-2018BI00603245

PATIENT
  Age: 60 Year
  Sex: Female

DRUGS (1)
  1. TYSABRI [Suspect]
     Active Substance: NATALIZUMAB
     Indication: MULTIPLE SCLEROSIS
     Dosage: INFUSED VOER 1 HOUR
     Route: 042
     Dates: start: 20101206, end: 20180213

REACTIONS (10)
  - Essential hypertension [Unknown]
  - Arteriosclerosis coronary artery [Unknown]
  - Dermatitis atopic [Unknown]
  - Bladder disorder [Unknown]
  - Obesity [Unknown]
  - Osteoporosis [Unknown]
  - Multiple sclerosis [Unknown]
  - Muscle spasms [Unknown]
  - Major depression [Unknown]
  - Constipation [Unknown]

NARRATIVE: CASE EVENT DATE: 20161021
